FAERS Safety Report 13871561 (Version 4)
Quarter: 2018Q1

REPORT INFORMATION
  Report Type: Report from Study
  Country: DE (occurrence: DE)
  Receive Date: 20170816
  Receipt Date: 20180329
  Transmission Date: 20180508
  Serious: Yes (Other)
  Sender: FDA-Public Use
  Company Number: DE-BIOGEN-2017BI00438555

PATIENT
  Age: 29 Year
  Sex: Male

DRUGS (3)
  1. PLEGRIDY [Suspect]
     Active Substance: PEGINTERFERON BETA-1A
     Route: 058
  2. PLEGRIDY [Suspect]
     Active Substance: PEGINTERFERON BETA-1A
     Route: 058
     Dates: end: 20180223
  3. PLEGRIDY [Suspect]
     Active Substance: PEGINTERFERON BETA-1A
     Indication: MULTIPLE SCLEROSIS
     Route: 058
     Dates: start: 20161208, end: 20170801

REACTIONS (8)
  - Alanine aminotransferase increased [Recovered/Resolved]
  - Diarrhoea [Recovered/Resolved]
  - Pruritus [Recovered/Resolved]
  - Blood bilirubin increased [Recovered/Resolved]
  - Aspartate aminotransferase increased [Recovered/Resolved]
  - Nausea [Recovered/Resolved]
  - Ocular icterus [Not Recovered/Not Resolved]
  - Chromaturia [Recovered/Resolved]

NARRATIVE: CASE EVENT DATE: 201707
